FAERS Safety Report 9464938 (Version 2)
Quarter: 2013Q3

REPORT INFORMATION
  Report Type: Report from Study
  Country: DE (occurrence: DE)
  Receive Date: 20130819
  Receipt Date: 20130919
  Transmission Date: 20140515
  Serious: Yes (Death, Life-Threatening, Hospitalization, Other)
  Sender: FDA-Public Use
  Company Number: PHHY2013DE088632

PATIENT
  Sex: Male

DRUGS (5)
  1. ICL670A [Suspect]
     Indication: MYELODYSPLASTIC SYNDROME
     Dosage: 1500 MG (500 MG, 3-0-0)
     Route: 048
     Dates: start: 20130506
  2. METFORMIN [Concomitant]
     Dosage: 850 MG, DAILY
  3. TORASEMIDE [Concomitant]
     Dosage: 5 MG, DAILY
  4. BISOPROLOL [Concomitant]
     Dosage: 2.5 MG, QD
  5. TROMCARDIN FORTE [Concomitant]
     Dosage: 2 DF, DAILY

REACTIONS (3)
  - Fall [Not Recovered/Not Resolved]
  - Subdural haematoma [Recovered/Resolved]
  - Death [Fatal]
